FAERS Safety Report 20931418 (Version 1)
Quarter: 2022Q2

REPORT INFORMATION
  Report Type: Spontaneous
  Country: JP (occurrence: JP)
  Receive Date: 20220608
  Receipt Date: 20220608
  Transmission Date: 20220721
  Serious: No
  Sender: FDA-Public Use
  Company Number: JP-LUPIN PHARMACEUTICALS INC.-2022-08544

PATIENT
  Age: 32 Year
  Sex: Female
  Weight: 63 kg

DRUGS (6)
  1. DULOXETINE [Suspect]
     Active Substance: DULOXETINE
     Indication: Depressive symptom
     Dosage: 20 MG, QD
     Route: 065
  2. LORAZEPAM [Suspect]
     Active Substance: LORAZEPAM
     Indication: Depressive symptom
     Dosage: 1.5 MG, QD
     Route: 065
  3. FLUNITRAZEPAM [Suspect]
     Active Substance: FLUNITRAZEPAM
     Indication: Depressive symptom
     Dosage: .5 MG, QD
     Route: 065
  4. TRAZODONE [Suspect]
     Active Substance: TRAZODONE HYDROCHLORIDE
     Indication: Depressive symptom
     Dosage: 12.5 MG, QD
     Route: 064
  5. BROTIZOLAM [Suspect]
     Active Substance: BROTIZOLAM
     Indication: Depressive symptom
     Dosage: 0.125 MG, QD
     Route: 065
  6. ATOMOXETINE [Suspect]
     Active Substance: ATOMOXETINE
     Indication: Depressive symptom
     Dosage: 50 MG, QD
     Route: 065

REACTIONS (1)
  - Exposure during pregnancy [Unknown]
